FAERS Safety Report 5750204-0 (Version None)
Quarter: 2008Q2

REPORT INFORMATION
  Report Type: 
  Country: None (occurrence: None)
  Receive Date: 20080527
  Receipt Date: 20080515
  Transmission Date: 20081010
  Serious: Yes (Other)
  Sender: FDA-Public Use
  Company Number: NO-PFIZER INC-2008042484

PATIENT
  Sex: Female

DRUGS (2)
  1. ZYVOXID TABLET [Suspect]
     Indication: DEVICE RELATED INFECTION
     Route: 048
  2. VANCOMYCIN [Concomitant]
     Route: 042

REACTIONS (1)
  - HEPATIC FAILURE [None]
